FAERS Safety Report 14138948 (Version 2)
Quarter: 2017Q4

REPORT INFORMATION
  Report Type: Report from Study
  Country: CL (occurrence: CL)
  Receive Date: 20171027
  Receipt Date: 20171107
  Transmission Date: 20180321
  Serious: Yes (Hospitalization, Other)
  Sender: FDA-Public Use
  Company Number: CL-ARIAD PHARMACEUTICALS, INC-2017CL009144

PATIENT
  Age: 59 Year
  Sex: Male
  Weight: 85 kg

DRUGS (3)
  1. PONATINIB [Suspect]
     Active Substance: PONATINIB
     Indication: CHRONIC MYELOID LEUKAEMIA
     Dosage: 15 MG, QD
     Route: 048
     Dates: start: 20170629, end: 20170802
  2. PONATINIB [Suspect]
     Active Substance: PONATINIB
     Dosage: 10 MG, QD
     Route: 048
     Dates: start: 20170928, end: 20171017
  3. PONATINIB [Suspect]
     Active Substance: PONATINIB
     Dosage: 10 MG, QD
     Route: 048
     Dates: start: 20170824, end: 20170920

REACTIONS (1)
  - Pancytopenia [Recovered/Resolved]

NARRATIVE: CASE EVENT DATE: 20171019
